FAERS Safety Report 5938970-2 (Version None)
Quarter: 2008Q4

REPORT INFORMATION
  Report Type: 
  Country: None (occurrence: None)
  Receive Date: 20081103
  Receipt Date: 20080317
  Transmission Date: 20090506
  Serious: No
  Sender: FDA-Public Use
  Company Number: US-BAYER-200811252BCC

PATIENT
  Sex: Male

DRUGS (13)
  1. ALEVE [Suspect]
     Indication: ARTHRALGIA
     Dosage: TOTAL DAILY DOSE: 220 MG  UNIT DOSE: 220 MG
     Route: 048
  2. METFORMIN HCL [Concomitant]
     Dosage: TOTAL DAILY DOSE: 2000 MG  UNIT DOSE: 1000 MG
     Route: 048
  3. LISINOPRIL [Concomitant]
     Dosage: TOTAL DAILY DOSE: 40 MG  UNIT DOSE: 40 MG
     Route: 048
  4. HYDROCHLOROTHIAZIDE [Concomitant]
  5. GLIMEPRIRIDE [Concomitant]
  6. PAROXETINE HCL [Concomitant]
  7. ZOLPIDEM [Concomitant]
  8. AMLODIPINE [Concomitant]
  9. JANUVIA [Concomitant]
  10. SIMVASTATIN [Concomitant]
  11. SLEEP AID [Concomitant]
  12. BLOOD THINNER [Concomitant]
  13. ASPIRIN [Concomitant]

REACTIONS (1)
  - DIARRHOEA [None]
